FAERS Safety Report 25663945 (Version 1)
Quarter: 2025Q3

REPORT INFORMATION
  Report Type: Spontaneous
  Country: US (occurrence: US)
  Receive Date: 20250811
  Receipt Date: 20250811
  Transmission Date: 20251020
  Serious: No
  Sender: MYLAN
  Company Number: US-MYLANLABS-2025M1066818

PATIENT
  Age: 88 Year

DRUGS (4)
  1. CELEBREX [Suspect]
     Active Substance: CELECOXIB
     Indication: Product used for unknown indication
     Dosage: UNK, QD (1 OR 2 DAILY AS NEEDED)
     Dates: start: 20250311
  2. CELEBREX [Suspect]
     Active Substance: CELECOXIB
     Dosage: UNK, QD (1 OR 2 DAILY AS NEEDED)
     Route: 048
     Dates: start: 20250311
  3. CELEBREX [Suspect]
     Active Substance: CELECOXIB
     Dosage: UNK, QD (1 OR 2 DAILY AS NEEDED)
     Route: 048
     Dates: start: 20250311
  4. CELEBREX [Suspect]
     Active Substance: CELECOXIB
     Dosage: UNK, QD (1 OR 2 DAILY AS NEEDED)
     Dates: start: 20250311

REACTIONS (1)
  - Off label use [Unknown]

NARRATIVE: CASE EVENT DATE: 20250311
